FAERS Safety Report 5134045-3 (Version None)
Quarter: 2006Q4

REPORT INFORMATION
  Report Type: 
  Country: None (occurrence: None)
  Receive Date: 20061019
  Receipt Date: 20061006
  Transmission Date: 20070319
  Serious: Yes (Other)
  Sender: FDA-Public Use
  Company Number: HQWYE724106OCT06

PATIENT

DRUGS (5)
  1. PANTOPRAZOLE SODIUM [Suspect]
     Dosage: 20 MG 1X PER 1 DAY TRANSPLACENTAL
     Route: 064
  2. PRAVASTATIN [Suspect]
     Dosage: 40 MG 1X PER 1 DAY TRANSPLACENTAL
     Route: 064
  3. IMURAN [Suspect]
     Dosage: 50 MG 1X PER 1 DAY TRANSPLACENTAL
     Route: 064
  4. PREDNISONE TAB [Suspect]
     Dosage: 5 MG 1X PER 1 DAY TRANSPLACENTAL
     Route: 064
  5. PROGRAF [Suspect]
     Dosage: 3 MG 2X PER 1 DAY TRANSPLACENTAL
     Route: 064

REACTIONS (12)
  - BRAIN MALFORMATION [None]
  - CLEFT LIP [None]
  - CLEFT PALATE [None]
  - CONGENITAL ANOMALY [None]
  - CONGENITAL CENTRAL NERVOUS SYSTEM ANOMALY [None]
  - DEFORMITY THORAX [None]
  - DRUG EXPOSURE DURING PREGNANCY [None]
  - DYSMORPHISM [None]
  - LIMB MALFORMATION [None]
  - RENAL HYPERTROPHY [None]
  - SKIN HYPERTROPHY [None]
  - TALIPES [None]
